FAERS Safety Report 16040882 (Version 1)
Quarter: 2019Q1

REPORT INFORMATION
  Report Type: Spontaneous
  Country: US (occurrence: US)
  Receive Date: 20190306
  Receipt Date: 20190306
  Transmission Date: 20190418
  Serious: No
  Sender: FDA-Public Use
  Company Number: US-UNITED THERAPEUTICS-UNT-2019-003935

PATIENT
  Sex: Female

DRUGS (1)
  1. REMODULIN [Suspect]
     Active Substance: TREPROSTINIL
     Indication: PRODUCT USED FOR UNKNOWN INDICATION
     Dosage: 0.031 ?G/KG, CONTINUING
     Route: 041

REACTIONS (5)
  - Gait disturbance [Unknown]
  - Pain in extremity [Unknown]
  - Hypotension [Unknown]
  - Decreased appetite [Unknown]
  - Renal disorder [Unknown]
